FAERS Safety Report 11928024 (Version 3)
Quarter: 2016Q2

REPORT INFORMATION
  Report Type: Spontaneous
  Country: US (occurrence: US)
  Receive Date: 20160119
  Receipt Date: 20160415
  Transmission Date: 20160815
  Serious: No
  Sender: FDA-Public Use
  Company Number: US-PFIZER INC-2016020464

PATIENT
  Age: 52 Year
  Sex: Female
  Weight: 50 kg

DRUGS (14)
  1. LYRICA [Suspect]
     Active Substance: PREGABALIN
     Indication: PAIN
     Dosage: 25 MG, 3X/DAY
     Route: 048
     Dates: start: 20151228
  2. MINOCYCLINE [Concomitant]
     Active Substance: MINOCYCLINE\MINOCYCLINE HYDROCHLORIDE
     Indication: ACNE
     Dosage: 50 MG, AS NEEDED
  3. MINOCYCLINE [Concomitant]
     Active Substance: MINOCYCLINE\MINOCYCLINE HYDROCHLORIDE
     Dosage: UNK, AS NEEDED (2-3 TIMES AT MONTH)
     Dates: start: 2007
  4. VITAMIN D3 [Concomitant]
     Active Substance: CHOLECALCIFEROL
     Dosage: 2000 IU, DAILY
     Route: 048
  5. TUMS [Concomitant]
     Active Substance: CALCIUM CARBONATE
     Dosage: UNK
  6. CALCIUM [Concomitant]
     Active Substance: CALCIUM
     Dosage: 1200 MG, 2X/DAY
     Route: 048
  7. BIOTIN [Concomitant]
     Active Substance: BIOTIN
     Dosage: 1000 UG, DAILY
     Route: 048
  8. VITAMIN D3 [Concomitant]
     Active Substance: CHOLECALCIFEROL
     Dosage: 5000 IU, DAILY
     Route: 048
  9. FOLIC ACID. [Concomitant]
     Active Substance: FOLIC ACID
     Dosage: 400 UG, DAILY
  10. VITAMIN B12 [Concomitant]
     Active Substance: CYANOCOBALAMIN
     Dosage: 1000 UG, DAILY
     Route: 048
  11. TYLENOL [Concomitant]
     Active Substance: ACETAMINOPHEN
     Dosage: UNK, AS NEEDED (WHEN NEEDED)
  12. BENZAMYCIN [Concomitant]
     Active Substance: BENZOYL PEROXIDE\ERYTHROMYCIN
     Indication: ACNE
     Dosage: UNK (3%-5%) (EVERY MORNING) AS NEEDED
     Route: 061
  13. ESTROGENS CONJUGATED W/METHYLTESTOSTERONE [Concomitant]
     Dosage: UNK, 1X/DAY (ESTROGENS CONJUGATED 1.25MG, METHYLTESTOSTERONE 2.5MG)
     Dates: start: 20160115
  14. LYRICA [Suspect]
     Active Substance: PREGABALIN
     Indication: FIBROMYALGIA
     Dosage: 25 MG, 3X/DAY
     Route: 048
     Dates: start: 20151229, end: 201601

REACTIONS (1)
  - Drug ineffective [Unknown]
